FAERS Safety Report 17894591 (Version 1)
Quarter: 2020Q2

REPORT INFORMATION
  Report Type: Spontaneous
  Country: MG (occurrence: MG)
  Receive Date: 20200615
  Receipt Date: 20200615
  Transmission Date: 20200714
  Serious: Yes (Other)
  Sender: FDA-Public Use
  Company Number: MG-GLAXOSMITHKLINE-MG2020097904

PATIENT
  Age: 50 Year
  Sex: Male

DRUGS (2)
  1. TERBINAFINE. [Suspect]
     Active Substance: TERBINAFINE
     Indication: CHROMOBLASTOMYCOSIS
     Dosage: 500 MG, QD
     Route: 065
  2. ITRACONAZOLE. [Suspect]
     Active Substance: ITRACONAZOLE
     Indication: CHROMOBLASTOMYCOSIS
     Dosage: 200 MG, QD
     Route: 065

REACTIONS (4)
  - Skin lesion [Unknown]
  - Product use in unapproved indication [Unknown]
  - Chromoblastomycosis [Unknown]
  - Skin plaque [Unknown]
